FAERS Safety Report 24917384 (Version 1)
Quarter: 2025Q1

REPORT INFORMATION
  Report Type: Spontaneous
  Country: US (occurrence: None)
  Receive Date: 20250203
  Receipt Date: 20250203
  Transmission Date: 20250408
  Serious: Yes (Hospitalization)
  Sender: FDA-CTU
  Company Number: None

PATIENT
  Sex: Male

DRUGS (11)
  1. MYCOPHENOLIC ACID [Suspect]
     Active Substance: MYCOPHENOLIC ACID
     Indication: Renal transplant
     Route: 048
     Dates: start: 20230111
  2. AMLODIPINE TAB 5MG [Concomitant]
  3. ASPIRIN LOW TAB 81 MG EC [Concomitant]
  4. DOXYCYCL HYC CAP 1 00MG [Concomitant]
  5. ENVARSUS XR [Concomitant]
     Active Substance: TACROLIMUS
  6. JARDIANCE [Concomitant]
     Active Substance: EMPAGLIFLOZIN
  7. LOSARTAN POTASSIUM [Concomitant]
     Active Substance: LOSARTAN POTASSIUM
  8. LOSARTAN POT TAB 25MG [Concomitant]
  9. MULTl GUMMIE CHW MENS [Concomitant]
  10. NIFEDIPINE TAB 30MG ER [Concomitant]
  11. PANTOPRAZOLE TAB 40MG [Concomitant]

REACTIONS (1)
  - Atrial fibrillation [None]
